FAERS Safety Report 17564495 (Version 1)
Quarter: 2020Q1

REPORT INFORMATION
  Report Type: Report from Study
  Country: US (occurrence: US)
  Receive Date: 20200320
  Receipt Date: 20200320
  Transmission Date: 20200409
  Serious: Yes (Other)
  Sender: FDA-Public Use
  Company Number: US-GLAXOSMITHKLINE-US2020AMR048555

PATIENT
  Sex: Male

DRUGS (2)
  1. BELIMUMAB [Suspect]
     Active Substance: BELIMUMAB
     Indication: SYSTEMIC LUPUS ERYTHEMATOSUS
     Dosage: UNK
     Route: 065
  2. BELIMUMAB [Suspect]
     Active Substance: BELIMUMAB
     Indication: LUPUS NEPHRITIS

REACTIONS (4)
  - Systemic lupus erythematosus [Unknown]
  - Renal disorder [Unknown]
  - Off label use [Unknown]
  - Product use in unapproved indication [Unknown]
